APPROVED DRUG PRODUCT: SUCCINYLCHOLINE CHLORIDE
Active Ingredient: SUCCINYLCHOLINE CHLORIDE
Strength: 20MG/ML
Dosage Form/Route: INJECTABLE;INJECTION
Application: A216127 | Product #001
Applicant: MANKIND PHARMA LTD
Approved: Feb 2, 2023 | RLD: No | RS: No | Type: DISCN